FAERS Safety Report 18081572 (Version 3)
Quarter: 2021Q2

REPORT INFORMATION
  Report Type: Spontaneous
  Country: US (occurrence: US)
  Receive Date: 20200728
  Receipt Date: 20210629
  Transmission Date: 20210717
  Serious: Yes (Life-Threatening, Hospitalization)
  Sender: FDA-Public Use
  Company Number: US-TEVA-2020-US-1806016

PATIENT
  Age: 47 Year
  Sex: Male

DRUGS (11)
  1. NALOXONE [Concomitant]
     Active Substance: NALOXONE
     Indication: OVERDOSE
     Route: 042
  2. DEXMEDETOMIDINE. [Concomitant]
     Active Substance: DEXMEDETOMIDINE
     Indication: AGITATION
     Dosage: INFUSION TITRATED TO TARGET RICHMOND AGITATION?SEDATION SCALE (RASS) SCORES OF 0 TO ?2
     Route: 050
  3. PROPOFOL. [Concomitant]
     Active Substance: PROPOFOL
     Indication: AGITATION
     Dosage: INFUSION TITRATED TO TARGET RICHMOND AGITATION?SEDATION SCALE (RASS) SCORES OF 0 TO ?2
     Route: 050
  4. MIDAZOLAM. [Suspect]
     Active Substance: MIDAZOLAM
     Indication: ALCOHOL USE DISORDER
     Dosage: INFUSION TITRATED TO TARGET RICHMOND AGITATION?SEDATION SCALE (RASS) SCORES OF 0 TO ?2
     Route: 050
  5. EPINEPHRINE. [Concomitant]
     Active Substance: EPINEPHRINE
     Indication: CARDIAC ARREST
     Route: 042
  6. FLUMAZENIL. [Concomitant]
     Active Substance: FLUMAZENIL
     Indication: OVERDOSE
     Route: 042
  7. QUETIAPINE. [Concomitant]
     Active Substance: QUETIAPINE
     Indication: PRODUCT USED FOR UNKNOWN INDICATION
     Route: 065
  8. RISPERIDONE. [Concomitant]
     Active Substance: RISPERIDONE
     Indication: SCHIZOAFFECTIVE DISORDER DEPRESSIVE TYPE
     Dosage: STARTED AT A LOW DOSE BY THE PRIMARY TEAM
     Route: 065
  9. ALPRAZOLAM. [Suspect]
     Active Substance: ALPRAZOLAM
     Indication: PRODUCT USED FOR UNKNOWN INDICATION
     Dosage: HE HAD INGESTED ALPRAZOLAM.
     Route: 048
  10. MIDAZOLAM. [Suspect]
     Active Substance: MIDAZOLAM
     Indication: ALCOHOL USE DISORDER
     Dosage: ON HOSPITAL DAY 5
     Route: 042
  11. MIDAZOLAM. [Suspect]
     Active Substance: MIDAZOLAM
     Indication: ALCOHOL USE DISORDER
     Dosage: CLINICAL INSTITUTE FOR WITHDRAWAL ASSESSMENT OF ALCOHOL, REVISED (CIWA?AR) WAS STARTED; 36 LORAZE...
     Route: 065

REACTIONS (16)
  - Overdose [Recovering/Resolving]
  - Depressed level of consciousness [Recovered/Resolved]
  - Cardiac arrest [Recovered/Resolved]
  - Heart rate increased [Recovered/Resolved]
  - Delusion [Recovered/Resolved]
  - Toxicity to various agents [Recovering/Resolving]
  - Disorientation [Recovered/Resolved]
  - Hallucination, auditory [Recovered/Resolved]
  - Agitation [Recovered/Resolved]
  - Respiratory rate increased [Recovered/Resolved]
  - Delirium [Recovering/Resolving]
  - Disturbance in attention [Recovered/Resolved]
  - Fall [Recovered/Resolved]
  - Thinking abnormal [Recovering/Resolving]
  - Psychotic disorder [Recovering/Resolving]
  - Blood pressure increased [Recovered/Resolved]
